FAERS Safety Report 5085987-9 (Version None)
Quarter: 2006Q3

REPORT INFORMATION
  Report Type: 
  Country: None (occurrence: None)
  Receive Date: 20060817
  Receipt Date: 20060802
  Transmission Date: 20061208
  Serious: Yes (Other)
  Sender: FDA-Public Use
  Company Number: 2006097594

PATIENT
  Age: 50 Year
  Sex: Female

DRUGS (1)
  1. LIPITOR [Suspect]
     Indication: DRUG USE FOR UNKNOWN INDICATION
     Dosage: 20 MG (20 MG, HS), ORAL
     Route: 048

REACTIONS (4)
  - EXTRASYSTOLES [None]
  - MIDDLE INSOMNIA [None]
  - PALPITATIONS [None]
  - TACHYCARDIA [None]
